FAERS Safety Report 21484540 (Version 2)
Quarter: 2022Q4

REPORT INFORMATION
  Report Type: Spontaneous
  Country: CN (occurrence: CN)
  Receive Date: 20221020
  Receipt Date: 20221107
  Transmission Date: 20230113
  Serious: Yes (Other)
  Sender: FDA-Public Use
  Company Number: CN-NOVARTISPH-NVSC2022CN200250

PATIENT
  Sex: Female

DRUGS (3)
  1. DIOVAN [Suspect]
     Active Substance: VALSARTAN
     Indication: Product used for unknown indication
     Dosage: 1 DOSAGE FORM, QD, (PILL)
     Route: 048
  2. DIOVAN [Suspect]
     Active Substance: VALSARTAN
     Dosage: 2 DOSAGE FORM, QD (EVERYDAY, ONE PILL IN THE MORNING AND ONE PILL IN THE EVENING)
     Route: 048
  3. NORVASC [Concomitant]
     Active Substance: AMLODIPINE BESYLATE
     Indication: Product used for unknown indication
     Dosage: 1 DOSAGE FORM, QD (IN THE EVENING)
     Route: 065

REACTIONS (7)
  - Meniere^s disease [Unknown]
  - Blood pressure increased [Unknown]
  - Headache [Recovering/Resolving]
  - Dizziness [Unknown]
  - Product outer packaging issue [Unknown]
  - Product storage error [Unknown]
  - Drug ineffective [Unknown]
